FAERS Safety Report 6593532-1 (Version None)
Quarter: 2010Q1

REPORT INFORMATION
  Report Type: 
  Country: None (occurrence: None)
  Receive Date: 20100222
  Receipt Date: 20090731
  Transmission Date: 20100710
  Serious: No
  Sender: FDA-Public Use
  Company Number: US-BRISTOL-MYERS SQUIBB COMPANY-14683213

PATIENT
  Age: 68 Year
  Sex: Female
  Weight: 48 kg

DRUGS (8)
  1. ORENCIA [Suspect]
     Indication: RHEUMATOID ARTHRITIS
     Dosage: INITIATED IN NOV-2008 AND THEN STOPPED. RESUMED IN FEB-2009, LAST INF:19JUN09
     Dates: start: 20081101
  2. FOLIC ACID [Concomitant]
  3. ACIPHEX [Concomitant]
  4. DYAZIDE [Concomitant]
  5. PREMARIN [Concomitant]
  6. CELEBREX [Concomitant]
  7. CRESTOR [Concomitant]
  8. CALCIUM [Concomitant]

REACTIONS (1)
  - ALOPECIA [None]
